FAERS Safety Report 20450345 (Version 1)
Quarter: 2022Q1

REPORT INFORMATION
  Report Type: Spontaneous
  Country: US (occurrence: None)
  Receive Date: 20220208
  Receipt Date: 20220208
  Transmission Date: 20220423
  Serious: No
  Sender: FDA-Public Use
  Company Number: None

PATIENT
  Age: 35 Year
  Sex: Male
  Weight: 89 kg

DRUGS (4)
  1. TEPEZZA [Suspect]
     Active Substance: TEPROTUMUMAB-TRBW
  2. TEPEZZA [Concomitant]
     Active Substance: TEPROTUMUMAB-TRBW
     Dates: start: 20211207, end: 20211207
  3. TEPEZZA [Concomitant]
     Active Substance: TEPROTUMUMAB-TRBW
     Dates: start: 20211228, end: 20211228
  4. TEPEZZA [Concomitant]
     Active Substance: TEPROTUMUMAB-TRBW
     Dates: end: 20220118

REACTIONS (3)
  - Libido decreased [None]
  - Erectile dysfunction [None]
  - Ear discomfort [None]

NARRATIVE: CASE EVENT DATE: 20220208
